FAERS Safety Report 5617386-2 (Version None)
Quarter: 2008Q1

REPORT INFORMATION
  Report Type: 
  Country: None (occurrence: None)
  Receive Date: 20080207
  Receipt Date: 20070731
  Transmission Date: 20080703
  Serious: No
  Sender: FDA-Public Use
  Company Number: A0667698A

PATIENT
  Sex: Male

DRUGS (1)
  1. PAXIL [Suspect]
     Indication: DRUG USE FOR UNKNOWN INDICATION
     Route: 065
     Dates: end: 20070710

REACTIONS (5)
  - ABNORMAL DREAMS [None]
  - ASTHENIA [None]
  - DRY MOUTH [None]
  - FATIGUE [None]
  - INSOMNIA [None]
